FAERS Safety Report 10163177 (Version 2)
Quarter: 2014Q2

REPORT INFORMATION
  Report Type: Spontaneous
  Country: FR (occurrence: FR)
  Receive Date: 20140509
  Receipt Date: 20140630
  Transmission Date: 20141212
  Serious: No
  Sender: FDA-Public Use
  Company Number: FR-GLAXOSMITHKLINE-B0990747A

PATIENT
  Sex: Male

DRUGS (2)
  1. ZELITREX [Suspect]
     Indication: PROPHYLAXIS
     Dosage: 1000MG CUMULATIVE DOSE
     Route: 048
     Dates: start: 2014
  2. CORTICOID [Concomitant]
     Route: 061

REACTIONS (3)
  - Eyelid oedema [Recovered/Resolved]
  - Face oedema [Recovered/Resolved]
  - Hypersensitivity [Recovered/Resolved]
